FAERS Safety Report 23692104 (Version 1)
Quarter: 2024Q1

REPORT INFORMATION
  Report Type: Spontaneous
  Country: US (occurrence: None)
  Receive Date: 20240329
  Receipt Date: 20240329
  Transmission Date: 20240410
  Serious: No
  Sender: FDA-Public Use
  Company Number: None

PATIENT
  Sex: Male

DRUGS (2)
  1. LENALIDOMIDE [Suspect]
     Active Substance: LENALIDOMIDE
     Indication: Plasma cell myeloma
     Dosage: TAKE 1 CAPSULE BY MOUTH 1 TIME A DAY FOR 21 DAYS ?
     Route: 048
     Dates: start: 202208
  2. REVLIMID [Concomitant]

REACTIONS (6)
  - Diarrhoea [None]
  - Dehydration [None]
  - Blood potassium decreased [None]
  - Blood magnesium decreased [None]
  - Hypotension [None]
  - Anaemia [None]
